FAERS Safety Report 6530892-1 (Version None)
Quarter: 2010Q1

REPORT INFORMATION
  Report Type: 
  Country: None (occurrence: None)
  Receive Date: 20100108
  Receipt Date: 20090512
  Transmission Date: 20100710
  Serious: No
  Sender: FDA-Public Use
  Company Number: A0783762A

PATIENT
  Sex: Male

DRUGS (3)
  1. LOVAZA [Suspect]
     Route: 048
  2. NIACIN [Suspect]
     Route: 048
  3. ASPIRIN [Concomitant]

REACTIONS (3)
  - DRUG INTERACTION [None]
  - ERUCTATION [None]
  - FLUSHING [None]
